FAERS Safety Report 13653280 (Version 1)
Quarter: 2017Q2

REPORT INFORMATION
  Report Type: Spontaneous
  Country: US (occurrence: US)
  Receive Date: 20170614
  Receipt Date: 20170614
  Transmission Date: 20170830
  Serious: Yes (Other)
  Sender: FDA-Public Use
  Company Number: US-ROCHE-1444581

PATIENT
  Sex: Female

DRUGS (3)
  1. XELODA [Suspect]
     Active Substance: CAPECITABINE
     Indication: NEOPLASM MALIGNANT
     Dosage: 500 MG (3 AM, 4 PM) 2 WKS ON, 1 WK OFF
     Route: 048
     Dates: start: 20140612
  2. XELODA [Suspect]
     Active Substance: CAPECITABINE
     Dosage: AM
     Route: 048
     Dates: start: 20140612
  3. XELODA [Suspect]
     Active Substance: CAPECITABINE
     Dosage: PM
     Route: 048
     Dates: start: 20140612

REACTIONS (2)
  - Thrombosis [Unknown]
  - Diarrhoea [Not Recovered/Not Resolved]
